FAERS Safety Report 5405476-9 (Version None)
Quarter: 2007Q3

REPORT INFORMATION
  Report Type: 
  Country: None (occurrence: None)
  Receive Date: 20070803
  Receipt Date: 20070723
  Transmission Date: 20080115
  Serious: Yes (Hospitalization)
  Sender: FDA-Public Use
  Company Number: JP-PFIZER INC-2007060497

PATIENT
  Age: 64 Year
  Sex: Female
  Weight: 70 kg

DRUGS (11)
  1. UNASYN [Suspect]
     Indication: CELLULITIS
     Route: 042
     Dates: start: 20070719, end: 20070719
  2. ASPIRIN [Concomitant]
     Route: 048
  3. FAMOTIDINE [Concomitant]
     Route: 048
  4. SPIROPENT [Concomitant]
     Route: 048
  5. THEO-DUR [Concomitant]
     Route: 048
  6. ADALAT [Concomitant]
     Route: 048
  7. MUCOSOLVAN [Concomitant]
     Route: 048
  8. LASIX [Concomitant]
     Route: 048
  9. WARFARIN SODIUM [Concomitant]
     Route: 048
  10. DOXAZOSIN MESYLATE [Concomitant]
     Route: 048
  11. OPALMON [Concomitant]
     Route: 048

REACTIONS (2)
  - DYSPHORIA [None]
  - DYSPNOEA [None]
